FAERS Safety Report 9784215 (Version 1)
Quarter: 2013Q4

REPORT INFORMATION
  Report Type: Spontaneous
  Country: US (occurrence: US)
  Receive Date: 20131226
  Receipt Date: 20131226
  Transmission Date: 20140711
  Serious: Yes (Hospitalization)
  Sender: FDA-Public Use
  Company Number: US-B.I. PHARMACEUTICALS,INC./RIDGEFIELD-2013-BI-43172BP

PATIENT
  Age: 86 Year
  Sex: Female
  Weight: 35 kg

DRUGS (16)
  1. PRADAXA [Suspect]
     Indication: ATRIAL FIBRILLATION
     Dosage: 150 MG
     Route: 048
     Dates: start: 201011, end: 20131216
  2. IRON [Concomitant]
  3. JANUVIA [Concomitant]
     Indication: DIABETES MELLITUS
     Dosage: 100 MG
     Route: 048
  4. HUMALOG QUIKPEN [Concomitant]
     Indication: DIABETES MELLITUS
     Dosage: FORMULATION: SUBCUTANEOUS
     Route: 058
  5. LASIX [Concomitant]
     Indication: CARDIAC FAILURE CONGESTIVE
     Dosage: 40 MG
     Route: 048
  6. LASIX [Concomitant]
     Indication: OEDEMA
  7. PROTONIX [Concomitant]
     Dosage: 80 MG
     Route: 048
  8. TRAMADOL [Concomitant]
     Indication: PAIN
     Dosage: PRN
     Route: 048
  9. TRAMADOL [Concomitant]
     Indication: MULTIPLE FRACTURES
  10. ISOSORBIDE MONONITRATE [Concomitant]
     Indication: CORONARY ARTERY DISEASE
     Dosage: 30 MG
     Route: 048
  11. LEVEMIR FLEXPEN AS DIRECTED [Concomitant]
     Indication: DIABETES MELLITUS
     Route: 058
  12. VITAMIN B12 SUBLINGUAL [Concomitant]
     Dosage: 1000 MG
  13. NITRO SPRAY [Concomitant]
     Indication: CHEST PAIN
     Dosage: FORMULATION: SPRAY
     Route: 048
  14. LISINOPRIL [Concomitant]
     Indication: HYPERTENSION
     Dosage: 10 MG
     Route: 048
  15. COREG [Concomitant]
     Indication: ATRIAL FIBRILLATION
     Dosage: 25 MG
     Route: 048
  16. COREG [Concomitant]
     Indication: HYPERTENSION

REACTIONS (1)
  - Gastrointestinal haemorrhage [Not Recovered/Not Resolved]
